FAERS Safety Report 17760354 (Version 4)
Quarter: 2021Q1

REPORT INFORMATION
  Report Type: Spontaneous
  Country: US (occurrence: US)
  Receive Date: 20200508
  Receipt Date: 20210212
  Transmission Date: 20210419
  Serious: Yes (Hospitalization, Other)
  Sender: FDA-Public Use
  Company Number: US-GILEAD-2020-0465077

PATIENT
  Age: 52 Year
  Sex: Female

DRUGS (1)
  1. TRUVADA [Suspect]
     Active Substance: EMTRICITABINE\TENOFOVIR DISOPROXIL FUMARATE
     Indication: HIV INFECTION
     Dosage: UNK
     Route: 048
     Dates: start: 20080101, end: 20190101

REACTIONS (12)
  - Osteoporosis [Not Recovered/Not Resolved]
  - Fracture [Unknown]
  - Bone density abnormal [Not Recovered/Not Resolved]
  - Chronic kidney disease [Not Recovered/Not Resolved]
  - Bone density decreased [Not Recovered/Not Resolved]
  - End stage renal disease [Not Recovered/Not Resolved]
  - Osteonecrosis [Unknown]
  - Nephropathy [Not Recovered/Not Resolved]
  - Osteopenia [Not Recovered/Not Resolved]
  - Renal failure [Unknown]
  - Tooth loss [Not Recovered/Not Resolved]
  - Bone loss [Unknown]

NARRATIVE: CASE EVENT DATE: 201801
